FAERS Safety Report 25176367 (Version 2)
Quarter: 2025Q3

REPORT INFORMATION
  Report Type: Spontaneous
  Country: US (occurrence: US)
  Receive Date: 20250409
  Receipt Date: 20250828
  Transmission Date: 20251021
  Serious: No
  Sender: SANOFI AVENTIS
  Company Number: US-SA-2025SA101233

PATIENT
  Age: 55 Year
  Sex: Female
  Weight: 71.36 kg

DRUGS (1)
  1. DUPIXENT [Suspect]
     Active Substance: DUPILUMAB
     Indication: Neurodermatitis
     Dosage: 300 MG, QOW
     Route: 058

REACTIONS (3)
  - Injection site pain [Unknown]
  - Sleep disorder due to a general medical condition [Unknown]
  - Pruritus [Unknown]

NARRATIVE: CASE EVENT DATE: 20250801
